FAERS Safety Report 7432948-8 (Version None)
Quarter: 2011Q2

REPORT INFORMATION
  Report Type: 
  Country: None (occurrence: None)
  Receive Date: 20110422
  Receipt Date: 20110418
  Transmission Date: 20111010
  Serious: Yes (Life-Threatening, Hospitalization)
  Sender: FDA-Public Use
  Company Number: FR-SANOFI-AVENTIS-2011SA023666

PATIENT
  Age: 62 Year
  Sex: Female

DRUGS (21)
  1. FLUOROURACIL [Suspect]
     Route: 042
     Dates: start: 20090325, end: 20100504
  2. AVASTIN [Suspect]
     Route: 042
     Dates: start: 20101208, end: 20110105
  3. XALATAN [Concomitant]
     Indication: GLAUCOMA
  4. DEROXAT [Concomitant]
     Indication: DEPRESSION
  5. FLUOROURACIL [Suspect]
     Route: 042
     Dates: start: 20060620, end: 20060906
  6. FLUOROURACIL [Suspect]
     Route: 042
     Dates: start: 20100525, end: 20101124
  7. FLUOROURACIL [Suspect]
     Route: 042
     Dates: start: 20070330, end: 20070607
  8. AVASTIN [Suspect]
     Route: 042
     Dates: start: 20090325, end: 20100504
  9. FLUOROURACIL [Suspect]
     Route: 042
     Dates: start: 20081128, end: 20090212
  10. AVASTIN [Suspect]
     Route: 042
     Dates: start: 20070621, end: 20070712
  11. AVASTIN [Suspect]
     Route: 042
     Dates: start: 20081128, end: 20090212
  12. OXALIPLATIN [Suspect]
     Route: 042
     Dates: start: 20060620, end: 20060906
  13. OXALIPLATIN [Suspect]
     Route: 042
     Dates: start: 20081128, end: 20090212
  14. FLUOROURACIL [Suspect]
     Route: 042
     Dates: start: 20101208, end: 20110105
  15. AVASTIN [Suspect]
     Route: 042
     Dates: start: 20070802, end: 20080709
  16. XELODA [Concomitant]
     Dates: start: 20070621, end: 20070712
  17. SECTRAL [Concomitant]
     Indication: TACHYCARDIA
  18. OXALIPLATIN [Suspect]
     Route: 042
     Dates: start: 20101208, end: 20110105
  19. FLUOROURACIL [Suspect]
     Route: 042
     Dates: start: 20070802, end: 20080709
  20. AVASTIN [Suspect]
     Route: 042
     Dates: start: 20070330, end: 20070607
  21. CAMPTOSAR [Concomitant]
     Route: 042
     Dates: start: 20100525, end: 20101124

REACTIONS (1)
  - CONGESTIVE CARDIOMYOPATHY [None]
